FAERS Safety Report 6850153-0 (Version None)
Quarter: 2010Q3

REPORT INFORMATION
  Report Type: 
  Country: None (occurrence: None)
  Receive Date: 20100716
  Receipt Date: 20071011
  Transmission Date: 20110219
  Serious: No
  Sender: FDA-Public Use
  Company Number: US-PFIZER INC-2007086877

PATIENT
  Sex: Female
  Weight: 63.5 kg

DRUGS (11)
  1. CHANTIX [Suspect]
     Indication: SMOKING CESSATION THERAPY
     Dates: start: 20070101, end: 20070101
  2. AMLODIPINE [Concomitant]
  3. COREG [Concomitant]
  4. PRANDIN [Concomitant]
  5. ZETIA [Concomitant]
  6. KLOR-CON [Concomitant]
  7. PRAVASTATIN [Concomitant]
  8. EVISTA [Concomitant]
  9. SYNTHROID [Concomitant]
  10. ACTOS [Concomitant]
  11. CILOSTAZOL [Concomitant]

REACTIONS (1)
  - HEADACHE [None]
